FAERS Safety Report 8979298 (Version 2)
Quarter: 2013Q2

REPORT INFORMATION
  Report Type: Spontaneous
  Country: FR (occurrence: FR)
  Receive Date: 20121221
  Receipt Date: 20130606
  Transmission Date: 20140414
  Serious: Yes (Other)
  Sender: FDA-Public Use
  Company Number: FR-BRISTOL-MYERS SQUIBB COMPANY-17211459

PATIENT
  Age: 41 Year
  Sex: Male
  Weight: 75 kg

DRUGS (3)
  1. REYATAZ CAPS [Suspect]
     Indication: HIV INFECTION
     Route: 048
     Dates: start: 20040425, end: 20130521
  2. NORVIR [Suspect]
     Indication: HIV INFECTION
     Route: 048
     Dates: start: 2003
  3. TRUVADA [Suspect]
     Indication: HIV INFECTION
     Dates: start: 20060323

REACTIONS (4)
  - Salivary gland calculus [Recovered/Resolved with Sequelae]
  - Abscess of salivary gland [Recovered/Resolved with Sequelae]
  - VIIth nerve paralysis [Recovering/Resolving]
  - Jaundice [Recovered/Resolved]
